FAERS Safety Report 10663301 (Version 2)
Quarter: 2015Q1

REPORT INFORMATION
  Report Type: Spontaneous
  Country: US (occurrence: US)
  Receive Date: 20141218
  Receipt Date: 20150203
  Transmission Date: 20150720
  Serious: Yes (Hospitalization, Other)
  Sender: FDA-Public Use
  Company Number: US-GILEAD-2014-0127392

PATIENT
  Age: 26 Year
  Sex: Female

DRUGS (4)
  1. LETAIRIS [Suspect]
     Active Substance: AMBRISENTAN
     Indication: PRODUCT USED FOR UNKNOWN INDICATION
     Dosage: 5 MG, QD
     Route: 065
     Dates: start: 20140205
  2. COUMADIN [Concomitant]
     Active Substance: WARFARIN SODIUM
  3. REVATIO [Concomitant]
     Active Substance: SILDENAFIL CITRATE
  4. WARFARIN [Concomitant]
     Active Substance: WARFARIN

REACTIONS (9)
  - Feeling abnormal [Unknown]
  - Cardiac failure congestive [Unknown]
  - Drug dose omission [Unknown]
  - Cardiac discomfort [Unknown]
  - Stent placement [Unknown]
  - Hypersomnia [Unknown]
  - Fluid retention [Unknown]
  - Influenza [Unknown]
  - Heart valve calcification [Unknown]
